FAERS Safety Report 5589100-0 (Version None)
Quarter: 2007Q4

REPORT INFORMATION
  Report Type: 
  Country: None (occurrence: None)
  Receive Date: 20071212
  Receipt Date: 20070501
  Transmission Date: 20080405
  Serious: Yes (Death)
  Sender: FDA-Public Use
  Company Number: USA-2006-0025628

PATIENT
  Age: 47 Year
  Sex: Female

DRUGS (13)
  1. OXYCODONE HCL [Suspect]
     Indication: DRUG USE FOR UNKNOWN INDICATION
  2. TYLENOL W/ CODEINE NO. 3 [Suspect]
     Indication: DRUG USE FOR UNKNOWN INDICATION
  3. FENTANYL [Suspect]
     Indication: DRUG USE FOR UNKNOWN INDICATION
  4. ALPRAZOLAM [Suspect]
     Indication: DRUG USE FOR UNKNOWN INDICATION
  5. ZOLOFT [Suspect]
     Indication: DRUG USE FOR UNKNOWN INDICATION
  6. DOXYLAMINE SUCCINATE [Suspect]
     Indication: DRUG USE FOR UNKNOWN INDICATION
  7. OXYMORPHONE HCL [Suspect]
     Indication: DRUG USE FOR UNKNOWN INDICATION
  8. AMBIEN [Suspect]
     Indication: DRUG USE FOR UNKNOWN INDICATION
  9. LIPITOR [Concomitant]
  10. LEVAQUIN [Concomitant]
  11. DOXYCYCLINE [Concomitant]
  12. LOTREL [Concomitant]
  13. TOPROL-XL [Concomitant]

REACTIONS (1)
  - DRUG ABUSE [None]
